FAERS Safety Report 8461276-7 (Version None)
Quarter: 2012Q2

REPORT INFORMATION
  Report Type: 
  Country: None (occurrence: None)
  Receive Date: 20120625
  Receipt Date: 20120611
  Transmission Date: 20120825
  Serious: No
  Sender: FDA-Public Use
  Company Number: US-JNJFOC-20120605480

PATIENT
  Sex: Male
  Weight: 61.24 kg

DRUGS (2)
  1. UNKNOWN MEDICATION [Concomitant]
     Indication: BREAKTHROUGH PAIN
     Route: 065
  2. DURAGESIC-100 [Suspect]
     Indication: PAIN
     Route: 062

REACTIONS (3)
  - POOR QUALITY DRUG ADMINISTERED [None]
  - WRONG TECHNIQUE IN DRUG USAGE PROCESS [None]
  - PRODUCT QUALITY ISSUE [None]
